FAERS Safety Report 6713608-5 (Version None)
Quarter: 2010Q2

REPORT INFORMATION
  Report Type: 
  Country: None (occurrence: None)
  Receive Date: 20100506
  Receipt Date: 20100430
  Transmission Date: 20101027
  Serious: Yes (Hospitalization)
  Sender: FDA-Public Use
  Company Number: A0816324A

PATIENT
  Age: 60 Year
  Sex: Female

DRUGS (1)
  1. ROSIGLITAZONE MALEATE [Suspect]
     Indication: DRUG USE FOR UNKNOWN INDICATION
     Dosage: 4MG PER DAY
     Route: 065
     Dates: start: 20050101, end: 20060816

REACTIONS (6)
  - ACTIVITIES OF DAILY LIVING IMPAIRED [None]
  - CARDIAC DISORDER [None]
  - CARDIAC FAILURE CONGESTIVE [None]
  - CHEST PAIN [None]
  - DYSPNOEA [None]
  - VENTRICULAR TACHYCARDIA [None]
